FAERS Safety Report 10610731 (Version 2)
Quarter: 2015Q1

REPORT INFORMATION
  Report Type: Spontaneous
  Country: US (occurrence: US)
  Receive Date: 20141126
  Receipt Date: 20150203
  Transmission Date: 20150720
  Serious: Yes (Other)
  Sender: FDA-Public Use
  Company Number: US-GLAXOSMITHKLINE-US2014GSK027168

PATIENT
  Sex: Male

DRUGS (2)
  1. WELLBUTRIN [Suspect]
     Active Substance: BUPROPION HYDROCHLORIDE
     Indication: DEPRESSION
     Dosage: 1 PILL IN THE PM TITRATED TO 3 PILLS A DAY
  2. ADVAIR HFA [Suspect]
     Active Substance: FLUTICASONE PROPIONATE\SALMETEROL XINAFOATE
     Indication: ASTHMA
     Dosage: 2-3 PUFFS PER DAY
     Dates: start: 2008, end: 2012

REACTIONS (19)
  - Dyspnoea [Not Recovered/Not Resolved]
  - Pharyngeal oedema [Unknown]
  - Rash generalised [Recovered/Resolved]
  - Hyperhidrosis [Unknown]
  - Abnormal dreams [Unknown]
  - Pulmonary fibrosis [Unknown]
  - Feeling abnormal [Unknown]
  - Agitation [Unknown]
  - Suffocation feeling [Not Recovered/Not Resolved]
  - Adverse event [Unknown]
  - Throat irritation [Recovered/Resolved]
  - Oropharyngeal pain [Unknown]
  - Increased appetite [Unknown]
  - Muscle twitching [Unknown]
  - Mouth swelling [Unknown]
  - Headache [Not Recovered/Not Resolved]
  - Candida infection [Unknown]
  - Heart rate increased [Unknown]
  - Impaired work ability [Unknown]

NARRATIVE: CASE EVENT DATE: 2008
